FAERS Safety Report 18539842 (Version 2)
Quarter: 2020Q4

REPORT INFORMATION
  Report Type: Report from Study
  Country: NL (occurrence: NL)
  Receive Date: 20201124
  Receipt Date: 20201221
  Transmission Date: 20210114
  Serious: Yes (Life-Threatening)
  Sender: FDA-Public Use
  Company Number: NL-ROCHE-2716382

PATIENT
  Age: 72 Year
  Sex: Female

DRUGS (7)
  1. PANTOPRAZOLE [Concomitant]
     Active Substance: PANTOPRAZOLE
  2. TOCILIZUMAB. [Suspect]
     Active Substance: TOCILIZUMAB
     Indication: COVID-19
     Dosage: 2 ADMINISTRATIONS
     Route: 042
     Dates: start: 20201111
  3. ESTRIOL [Concomitant]
     Active Substance: ESTRIOL
     Dosage: 1 SUPPOSITORY 1 X PER DAY
  4. PLANTAGO OVATA POWDER [Concomitant]
     Dosage: 1 DOSE 2 X PER DAY
  5. CIPROFLOXACIN. [Concomitant]
     Active Substance: CIPROFLOXACIN
     Route: 042
  6. PARACETAMOL [Concomitant]
     Active Substance: ACETAMINOPHEN
     Dosage: 2 TABLETS 4 X PER DAY
  7. COLECALCIFEROL [Concomitant]
     Active Substance: CHOLECALCIFEROL
     Dosage: 1 CAPSULE 1 X PER WEEK INSTEAD OF COLECALCIFEROL CAPSULE 5600 IU, 1 CAPSULE 1X?PER WEEK 1 ON SUNDAYS

REACTIONS (2)
  - Respiratory failure [Recovered/Resolved with Sequelae]
  - COVID-19 [Recovered/Resolved with Sequelae]

NARRATIVE: CASE EVENT DATE: 20201112
